FAERS Safety Report 24173544 (Version 2)
Quarter: 2024Q3

REPORT INFORMATION
  Report Type: Spontaneous
  Country: TW (occurrence: TW)
  Receive Date: 20240805
  Receipt Date: 20240908
  Transmission Date: 20241016
  Serious: Yes (Other)
  Sender: AMGEN
  Company Number: TW-PFIZER INC-PV202400099621

PATIENT
  Age: 71 Year
  Sex: Female

DRUGS (1)
  1. ENBREL [Suspect]
     Active Substance: ETANERCEPT
     Indication: Rheumatoid arthritis
     Dosage: 25 MG, 2X/WEEK
     Route: 058
     Dates: start: 20240523, end: 20240729

REACTIONS (2)
  - Pemphigoid [Unknown]
  - Bullous impetigo [Not Recovered/Not Resolved]
